FAERS Safety Report 6672140-8 (Version None)
Quarter: 2010Q2

REPORT INFORMATION
  Report Type: 
  Country: None (occurrence: None)
  Receive Date: 20100407
  Receipt Date: 20100407
  Transmission Date: 20101027
  Serious: Yes (Other)
  Sender: FDA-Public Use
  Company Number: None

PATIENT
  Age: 29 Year
  Sex: Female
  Weight: 77.1115 kg

DRUGS (1)
  1. CHANTIX [Suspect]
     Indication: SMOKING CESSATION THERAPY
     Dosage: .5MG 1-2 TIMES A DAY PO
     Route: 048
     Dates: start: 20100329, end: 20100404

REACTIONS (4)
  - ANXIETY [None]
  - DEPRESSION [None]
  - HOSTILITY [None]
  - PRODUCT QUALITY ISSUE [None]
